FAERS Safety Report 6725134-8 (Version None)
Quarter: 2010Q2

REPORT INFORMATION
  Report Type: 
  Country: None (occurrence: None)
  Receive Date: 20100513
  Receipt Date: 20100513
  Transmission Date: 20101027
  Serious: Yes (Hospitalization)
  Sender: FDA-Public Use
  Company Number: None

PATIENT
  Sex: Female
  Weight: 89.8122 kg

DRUGS (9)
  1. PEGASYS [Suspect]
     Indication: HEPATITIS C
     Dosage: 180 MCG/0.5 ML PFS WEEKLY SQ
     Route: 058
     Dates: start: 20100421
  2. RIBAVIRIN [Suspect]
     Indication: HEPATITIS C
     Dosage: 2 CAPS -400 MG - BID DAILY PO
     Route: 048
     Dates: start: 20100421
  3. PRILOSEC [Concomitant]
  4. ZIPSOR [Concomitant]
  5. ULTRAM [Concomitant]
  6. PROZAC [Concomitant]
  7. DILANTIN [Concomitant]
  8. KEPPRA [Concomitant]
  9. TYLENOL (CAPLET) [Concomitant]

REACTIONS (4)
  - CONVULSION [None]
  - FALL [None]
  - FEELING ABNORMAL [None]
  - HUNGER [None]
